FAERS Safety Report 24897660 (Version 1)
Quarter: 2025Q1

REPORT INFORMATION
  Report Type: Spontaneous
  Country: GB (occurrence: GB)
  Receive Date: 20250129
  Receipt Date: 20250129
  Transmission Date: 20250409
  Serious: Yes (Other)
  Sender: ABBVIE
  Company Number: GB-JNJFOC-20250171770

PATIENT
  Sex: Female

DRUGS (1)
  1. IMBRUVICA [Suspect]
     Active Substance: IBRUTINIB
     Indication: Mantle cell lymphoma
     Route: 048

REACTIONS (3)
  - Cerebral haemorrhage [Recovering/Resolving]
  - COVID-19 [Recovering/Resolving]
  - Cerebrovascular accident [Recovering/Resolving]
